FAERS Safety Report 18273242 (Version 2)
Quarter: 2020Q4

REPORT INFORMATION
  Report Type: Spontaneous
  Country: CA (occurrence: CA)
  Receive Date: 20200916
  Receipt Date: 20201007
  Transmission Date: 20210113
  Serious: Yes (Life-Threatening, Hospitalization, Other)
  Sender: FDA-Public Use
  Company Number: CA-AUROBINDO-AUR-APL-2020-047856

PATIENT
  Age: 81 Year
  Sex: Female

DRUGS (1)
  1. AURO-ROSUVASTATIN TABLET [Suspect]
     Active Substance: ROSUVASTATIN
     Indication: ACUTE CORONARY SYNDROME
     Dosage: UNK
     Route: 065

REACTIONS (3)
  - Hyperkalaemia [Recovering/Resolving]
  - Rhabdomyolysis [Recovering/Resolving]
  - Acute kidney injury [Recovering/Resolving]
